FAERS Safety Report 5106003-6 (Version None)
Quarter: 2006Q3

REPORT INFORMATION
  Report Type: 
  Country: None (occurrence: None)
  Receive Date: 20060912
  Receipt Date: 20060831
  Transmission Date: 20061208
  Serious: Yes (Death, Life-Threatening)
  Sender: FDA-Public Use
  Company Number: 229386

PATIENT
  Age: 59 Year
  Sex: Female
  Weight: 107 kg

DRUGS (11)
  1. BEVACIZUMAB (BEVACIZUMAB) PWDR + SOLVENT, INFUSION SOLN, 100MG [Suspect]
     Indication: NON-SMALL CELL LUNG CANCER
     Dosage: 1620 MG, Q3W, INTRAVENOUS
     Route: 042
     Dates: start: 20060623, end: 20060802
  2. CARBOPLATIN [Suspect]
     Indication: NON-SMALL CELL LUNG CANCER
     Dosage: 640 MG, Q3W, INTRAVENOUS
     Route: 042
     Dates: start: 20060623, end: 20060802
  3. TAXOL [Suspect]
     Indication: NON-SMALL CELL LUNG CANCER
     Dosage: 400 MG, Q3W, INTRAVENOUS
     Route: 042
     Dates: start: 20060623, end: 20060802
  4. ALLOPURINOL [Concomitant]
  5. SYNTHROID [Concomitant]
  6. WELLBUTRIN XL [Concomitant]
  7. ALBUTEROL (ALBUTEROL/ALBUTEROL SULFATE) [Concomitant]
  8. LORTAB [Concomitant]
  9. FERROUS GLUCONATE [Concomitant]
  10. PROTONIX [Concomitant]
  11. ALEVE [Concomitant]

REACTIONS (10)
  - ATRIOVENTRICULAR BLOCK [None]
  - CARDIAC ARREST [None]
  - MOUTH HAEMORRHAGE [None]
  - PHARYNGOLARYNGEAL PAIN [None]
  - PRODUCTIVE COUGH [None]
  - PULMONARY HAEMORRHAGE [None]
  - RESPIRATORY ARREST [None]
  - SPUTUM PURULENT [None]
  - SPUTUM RETENTION [None]
  - THERAPY NON-RESPONDER [None]
